FAERS Safety Report 24551971 (Version 3)
Quarter: 2025Q3

REPORT INFORMATION
  Report Type: Spontaneous
  Country: US (occurrence: US)
  Receive Date: 20241026
  Receipt Date: 20250810
  Transmission Date: 20251021
  Serious: Yes (Other)
  Sender: ALEXION PHARMACEUTICALS
  Company Number: US-AstraZeneca-CH-00729726A

PATIENT
  Sex: Male

DRUGS (1)
  1. CALQUENCE [Suspect]
     Active Substance: ACALABRUTINIB

REACTIONS (5)
  - Dysarthria [Unknown]
  - Cerebrovascular accident [Unknown]
  - Neoplasm malignant [Unknown]
  - Cerebral haemorrhage [Unknown]
  - Transient ischaemic attack [Unknown]
